FAERS Safety Report 9225387 (Version 1)
Quarter: 2013Q2

REPORT INFORMATION
  Report Type: Spontaneous
  Country: FR (occurrence: None)
  Receive Date: 20130409
  Receipt Date: 20130409
  Transmission Date: 20140414
  Serious: Yes (Hospitalization)
  Sender: FDA-Public Use
  Company Number: GER/FRA/13/0028936

PATIENT
  Age: 52 Year
  Sex: Male

DRUGS (8)
  1. CLOPIDOGREL [Suspect]
     Indication: PRODUCT USED FOR UNKNOWN INDICATION
     Dosage: 1 IN 1 D
     Route: 048
     Dates: start: 20121022
  2. ATORVASTATIN [Suspect]
     Indication: PRODUCT USED FOR UNKNOWN INDICATION
     Dosage: 1 IN 1 D
     Route: 048
     Dates: start: 20121022
  3. DAFALGAN [Suspect]
     Indication: PRODUCT USED FOR UNKNOWN INDICATION
     Dosage: 1 DOSAGE FORMS, 1 IN 1 D
     Route: 048
     Dates: start: 20121022
  4. LOVENOX (ENOXAPARIN SODIUM) [Suspect]
     Indication: PRODUCT USED FOR UNKNOWN INDICATION
     Dosage: 1 DOSAGE FORMS, 1 IN 1 D
     Dates: start: 20121022, end: 20121213
  5. NICOPATCH [Suspect]
     Indication: PRODUCT USED FOR UNKNOWN INDICATION
     Dosage: 1 DOSAGE FORMS, 1 IN 1 D
     Dates: start: 20121022
  6. LYRICA (PREGABALIN) [Suspect]
     Indication: NEURALGIA
     Dosage: 1 IN 1 D
     Route: 048
     Dates: start: 20121117, end: 20121127
  7. OGAST [Suspect]
     Indication: PRODUCT USED FOR UNKNOWN INDICATION
     Dosage: 1 IN 1 D
     Route: 048
     Dates: start: 20121022
  8. MILNACIPRAN (MILNACIPRAN) (MILNACIPRAN) [Suspect]
     Indication: PRODUCT USED FOR UNKNOWN INDICATION
     Dosage: 1 IN 1 D
     Route: 048
     Dates: start: 20121025, end: 20121125

REACTIONS (3)
  - Leukocytoclastic vasculitis [None]
  - Infection [None]
  - Impaired healing [None]
